FAERS Safety Report 10736828 (Version 1)
Quarter: 2015Q1

REPORT INFORMATION
  Report Type: Spontaneous
  Country: US (occurrence: US)
  Receive Date: 20150126
  Receipt Date: 20150126
  Transmission Date: 20150721
  Serious: No
  Sender: FDA-Public Use
  Company Number: US-BRISTOL-MYERS SQUIBB COMPANY-21679022

PATIENT
  Sex: Female
  Weight: 56 kg

DRUGS (5)
  1. LEXAPRO [Concomitant]
     Active Substance: ESCITALOPRAM OXALATE
     Indication: PRODUCT USED FOR UNKNOWN INDICATION
     Route: 065
  2. ARIPIPRAZOLE. [Suspect]
     Active Substance: ARIPIPRAZOLE
     Indication: INJURY
     Dosage: 05 MG, QD
     Route: 048
     Dates: start: 2005
  3. ARIPIPRAZOLE. [Suspect]
     Active Substance: ARIPIPRAZOLE
     Indication: PARANOIA
  4. ARIPIPRAZOLE. [Suspect]
     Active Substance: ARIPIPRAZOLE
     Indication: HALLUCINATION, AUDITORY
  5. ALEVE [Concomitant]
     Active Substance: NAPROXEN SODIUM
     Indication: HEADACHE
     Route: 065

REACTIONS (1)
  - Off label use [Unknown]
